FAERS Safety Report 16687022 (Version 1)
Quarter: 2019Q3

REPORT INFORMATION
  Report Type: Spontaneous
  Country: None (occurrence: DE)
  Receive Date: 20190809
  Receipt Date: 20190809
  Transmission Date: 20191004
  Serious: Yes (Hospitalization, Other)
  Sender: FDA-Public Use
  Company Number: DE-ORION CORPORATION ORION PHARMA-19_00006758

PATIENT
  Age: 36 Year
  Sex: Male

DRUGS (9)
  1. ALEMTUZUMAB [Concomitant]
     Active Substance: ALEMTUZUMAB
     Indication: BONE MARROW CONDITIONING REGIMEN
     Dosage: LOW DOSE
     Route: 065
  2. BUSULFAN. [Concomitant]
     Active Substance: BUSULFAN
     Indication: BONE MARROW CONDITIONING REGIMEN
     Route: 065
  3. SOLIRIS [Suspect]
     Active Substance: ECULIZUMAB
     Indication: OFF LABEL USE
     Dosage: 16 INFUSIONS
     Route: 065
  4. CYCLOSPORINE. [Suspect]
     Active Substance: CYCLOSPORINE
     Indication: GRAFT VERSUS HOST DISEASE IN SKIN
     Dosage: UNK
     Route: 065
  5. METHOTREXATE (TRADE NAME UNKNOWN) [Suspect]
     Active Substance: METHOTREXATE
     Indication: PROPHYLAXIS AGAINST GRAFT VERSUS HOST DISEASE
     Route: 065
  6. SOLIRIS [Suspect]
     Active Substance: ECULIZUMAB
     Indication: THROMBOTIC MICROANGIOPATHY
     Dosage: STRENGTH: 300 MG, ?16 INFUSIONS, UNK
     Route: 065
     Dates: start: 20160501, end: 20161101
  7. MYCOPHENOLATE [Suspect]
     Active Substance: MYCOPHENOLIC ACID
     Indication: GRAFT VERSUS HOST DISEASE IN SKIN
     Dosage: UNK
     Route: 065
  8. METHYLPREDNISOLONE. [Suspect]
     Active Substance: METHYLPREDNISOLONE
     Indication: GRAFT VERSUS HOST DISEASE IN SKIN
     Dosage: UNK
     Route: 065
  9. IBRUTINIB [Concomitant]
     Active Substance: IBRUTINIB
     Indication: PROPHYLAXIS AGAINST GRAFT VERSUS HOST DISEASE
     Route: 065

REACTIONS (7)
  - Renal failure [Unknown]
  - Cytomegalovirus infection [Recovered/Resolved]
  - Human herpesvirus 6 infection [Recovered/Resolved]
  - Haemolytic anaemia [Unknown]
  - Graft versus host disease [Recovered/Resolved]
  - Platelet count decreased [Unknown]
  - Reticulocyte count increased [Recovered/Resolved]
